FAERS Safety Report 9803359 (Version 1)
Quarter: 2014Q1

REPORT INFORMATION
  Report Type: Spontaneous
  Country: US (occurrence: US)
  Receive Date: 20140108
  Receipt Date: 20140108
  Transmission Date: 20141002
  Serious: Yes (Death, Hospitalization)
  Sender: FDA-Public Use
  Company Number: US-UCBSA-108375

PATIENT
  Age: 53 Year
  Sex: Female

DRUGS (3)
  1. PHENTERMINE [Suspect]
  2. DIAZEPAM [Suspect]
  3. OXYMORPHONE [Suspect]

REACTIONS (2)
  - Cardio-respiratory arrest [Fatal]
  - Toxicity to various agents [Fatal]
